FAERS Safety Report 14469500 (Version 1)
Quarter: 2018Q1

REPORT INFORMATION
  Report Type: Spontaneous
  Country: US (occurrence: US)
  Receive Date: 20180131
  Receipt Date: 20180131
  Transmission Date: 20180509
  Serious: No
  Sender: FDA-Public Use
  Company Number: US-PFIZER INC-2018041142

PATIENT
  Age: 14 Year
  Sex: Female

DRUGS (2)
  1. QUILLIVANT XR [Suspect]
     Active Substance: METHYLPHENIDATE HYDROCHLORIDE
     Dosage: CUT THE MEDICINE DOWN TO 50 PERCENT
     Dates: start: 201801
  2. QUILLIVANT XR [Suspect]
     Active Substance: METHYLPHENIDATE HYDROCHLORIDE
     Dosage: 8 ML, 1X/DAY (8ML ONCE A DAY BY MOUTH)
     Route: 048

REACTIONS (1)
  - Malaise [Unknown]
